FAERS Safety Report 6060291 (Version 9)
Quarter: 2013Q2

REPORT INFORMATION
  Report Type: Report from Study
  Country: JP (occurrence: JP)
  Receive Date: 20060607
  Receipt Date: 20130605
  Transmission Date: 20140414
  Serious: Yes (Disabling, Other)
  Sender: FDA-Public Use
  Company Number: JP-ABBOTT-05P-087-0320164-00

PATIENT
  Age: 54 Year
  Sex: Male

DRUGS (39)
  1. KALETRA SOFT GELATIN CAPSULES [Suspect]
     Indication: HIV INFECTION
     Route: 048
     Dates: start: 20040602, end: 20061031
  2. KALETRA TABLETS 200MG/50MG [Suspect]
     Indication: HIV INFECTION
     Route: 048
     Dates: start: 20061101
  3. LAMIVUDINE [Suspect]
     Indication: HIV INFECTION
     Route: 048
     Dates: start: 20040401, end: 20040601
  4. STAVUDINE [Suspect]
     Indication: HIV INFECTION
     Route: 048
     Dates: start: 20040401, end: 20040601
  5. NELFINAVIR [Suspect]
     Indication: HIV INFECTION
     Route: 048
     Dates: start: 20040401, end: 20040601
  6. ABACAVIR [Concomitant]
     Indication: HIV INFECTION
     Route: 048
     Dates: start: 20040602, end: 20101019
  7. TENOFOVIR [Concomitant]
     Indication: HIV INFECTION
     Route: 048
     Dates: start: 20040602, end: 20100921
  8. ABACAVIR SULFATE W/LAMIVUDINE [Concomitant]
     Indication: HIV INFECTION
     Route: 048
     Dates: start: 20101020, end: 20111216
  9. RALTEGRAVIR POTASSIUM [Concomitant]
     Indication: HIV INFECTION
     Route: 048
     Dates: start: 20111227
  10. ATENOLOL [Concomitant]
     Indication: HYPERTENSION
     Route: 048
     Dates: start: 20040706
  11. ATENOLOL [Concomitant]
     Route: 048
     Dates: end: 20040705
  12. ALLOPURINOL [Concomitant]
     Indication: HYPERURICAEMIA
     Route: 048
     Dates: start: 20050816, end: 20111216
  13. NIFEDIPINE [Concomitant]
     Indication: HYPERTENSION
     Route: 048
     Dates: start: 20070703, end: 20111109
  14. NIFEDIPINE [Concomitant]
     Dates: start: 20111110, end: 20121102
  15. NIFEDIPINE [Concomitant]
     Route: 048
     Dates: end: 20030519
  16. NIFEDIPINE [Concomitant]
     Dates: start: 20030520, end: 20040705
  17. NIFEDIPINE [Concomitant]
     Dates: start: 20040706, end: 20041213
  18. NIFEDIPINE [Concomitant]
     Dates: start: 20041214, end: 20050606
  19. NIFEDIPINE [Concomitant]
     Dates: start: 20050607, end: 20070430
  20. NIFEDIPINE [Concomitant]
     Dates: start: 20070501, end: 20070702
  21. AMLODIPINE BESILATE [Concomitant]
     Indication: HYPERTENSION
     Route: 048
     Dates: start: 20111014, end: 20111221
  22. AMLODIPINE BESILATE [Concomitant]
     Dates: start: 20120103
  23. LANSOPRAZOLE [Concomitant]
     Indication: ULCER
     Route: 048
     Dates: start: 20111107, end: 20111116
  24. LANSOPRAZOLE [Concomitant]
     Indication: PROPHYLAXIS
  25. ALENDRONATE SODIUM HYDRATE [Concomitant]
     Indication: OSTEOPOROSIS
     Route: 048
     Dates: start: 20111107, end: 20111219
  26. ALENDRONATE SODIUM HYDRATE [Concomitant]
     Indication: PROPHYLAXIS
  27. ACYCLOVIR [Concomitant]
     Indication: INFECTION PROPHYLAXIS
     Route: 048
     Dates: start: 20111107, end: 20120214
  28. ITRACONAZOLE [Concomitant]
     Indication: INFECTION PROPHYLAXIS
     Route: 048
     Dates: start: 20111216, end: 20120113
  29. FAMOTIDINE [Concomitant]
     Indication: ULCER
     Route: 048
     Dates: start: 20111117
  30. FAMOTIDINE [Concomitant]
     Indication: PROPHYLAXIS
  31. ISONIAZID [Concomitant]
     Indication: INFECTION PROPHYLAXIS
     Route: 048
     Dates: start: 20111126, end: 20120113
  32. LORMETAZEPAM [Concomitant]
     Indication: INSOMNIA
     Route: 048
     Dates: start: 20111202
  33. OCTOCOG ALFA [Concomitant]
     Indication: FACTOR VIII DEFICIENCY
     Dates: start: 20111214
  34. OCTOCOG ALFA [Concomitant]
     Dates: start: 20111215, end: 20120105
  35. OCTOCOG ALFA [Concomitant]
     Dates: start: 20120106
  36. BENZBROMARONE [Concomitant]
     Indication: HYPERURICAEMIA
     Route: 048
     Dates: end: 20050815
  37. METHYLDOPA [Concomitant]
     Indication: HYPERTENSION
     Route: 048
     Dates: start: 20030506, end: 20040705
  38. DOXAZOSIN MESILATE [Concomitant]
     Indication: HYPERTENSION
     Route: 048
     Dates: start: 20030603, end: 20040705
  39. EMTRICITABINE [Concomitant]
     Indication: HIV INFECTION
     Route: 048
     Dates: start: 20100922, end: 20101019

REACTIONS (7)
  - Iron deficiency anaemia [Recovered/Resolved]
  - Muscular weakness [Unknown]
  - Nephropathy [Unknown]
  - Liver disorder [Not Recovered/Not Resolved]
  - Lymphocyte count increased [Not Recovered/Not Resolved]
  - Neutrophil count decreased [Not Recovered/Not Resolved]
  - Hypertriglyceridaemia [Not Recovered/Not Resolved]
